FAERS Safety Report 9124898 (Version 2)
Quarter: 2013Q1

REPORT INFORMATION
  Report Type: Spontaneous
  Country: US (occurrence: US)
  Receive Date: 20130227
  Receipt Date: 20130315
  Transmission Date: 20140127
  Serious: Yes (Hospitalization, Other)
  Sender: FDA-Public Use
  Company Number: US-PFIZER INC-2013066695

PATIENT
  Age: 20 Year
  Sex: Male
  Weight: 67.12 kg

DRUGS (1)
  1. XYNTHA [Suspect]
     Indication: FACTOR VIII DEFICIENCY
     Dosage: 1 IU/KG, AS NEEDED

REACTIONS (2)
  - Disease complication [Unknown]
  - Haemorrhage [Unknown]
